FAERS Safety Report 10805759 (Version 1)
Quarter: 2015Q1

REPORT INFORMATION
  Report Type: Report from Study
  Country: US (occurrence: US)
  Receive Date: 20150217
  Receipt Date: 20150217
  Transmission Date: 20150721
  Serious: No
  Sender: FDA-Public Use
  Company Number: US-ABBVIE-14K-163-1250756-00

PATIENT
  Age: 45 Year
  Sex: Male

DRUGS (4)
  1. HUMIRA [Suspect]
     Active Substance: ADALIMUMAB
     Indication: CROHN^S DISEASE
     Dosage: LOADING DOSE
     Dates: start: 20140610, end: 20140610
  2. HUMIRA [Suspect]
     Active Substance: ADALIMUMAB
     Dosage: LOADING DOSE
     Dates: start: 20140624, end: 20140624
  3. AMITRIPTYLINE [Suspect]
     Active Substance: AMITRIPTYLINE
     Indication: ANXIETY
     Dates: start: 20140624
  4. HUMIRA [Suspect]
     Active Substance: ADALIMUMAB
     Dates: start: 20140708

REACTIONS (18)
  - Rhinorrhoea [Recovering/Resolving]
  - Discomfort [Not Recovered/Not Resolved]
  - Productive cough [Recovering/Resolving]
  - Diarrhoea [Recovered/Resolved]
  - Scratch [Not Recovered/Not Resolved]
  - Hypersomnia [Not Recovered/Not Resolved]
  - Nasopharyngitis [Not Recovered/Not Resolved]
  - Cough [Not Recovered/Not Resolved]
  - Abdominal pain upper [Recovered/Resolved]
  - Vision blurred [Recovering/Resolving]
  - Nervousness [Not Recovered/Not Resolved]
  - Sinusitis [Not Recovered/Not Resolved]
  - Anxiety [Not Recovered/Not Resolved]
  - Haematochezia [Recovered/Resolved]
  - Impaired healing [Not Recovered/Not Resolved]
  - Dizziness [Recovering/Resolving]
  - Headache [Recovering/Resolving]
  - Scab [Not Recovered/Not Resolved]

NARRATIVE: CASE EVENT DATE: 2014
